FAERS Safety Report 8573027 (Version 3)
Quarter: 2012Q4

REPORT INFORMATION
  Report Type: Report from Study
  Country: DK (occurrence: JP)
  Receive Date: 20120522
  Receipt Date: 20121022
  Transmission Date: 20130627
  Serious: No
  Sender: FDA-Public Use
  Company Number: JP-FRI-1000030539

PATIENT
  Age: 38 Year
  Sex: Male
  Weight: 56 kg

DRUGS (4)
  1. ESCITALOPRAM [Suspect]
     Indication: DEPRESSION
     Dosage: 10 mg
     Route: 048
     Dates: start: 20120303
  2. FLUNITRAZEPAM [Concomitant]
     Indication: INSOMNIA
     Dosage: 1 mg
     Route: 048
  3. ETIZOLAM [Concomitant]
     Indication: INSOMNIA
     Dosage: 2 mg
     Route: 048
  4. ZOLPIDEM [Concomitant]
     Indication: INSOMNIA
     Dosage: 5 mg
     Route: 048
     Dates: start: 20120317, end: 20120401

REACTIONS (3)
  - Thirst [Recovered/Resolved]
  - Diarrhoea [Recovered/Resolved]
  - Decreased appetite [Recovered/Resolved]
